FAERS Safety Report 10285071 (Version 2)
Quarter: 2014Q1

REPORT INFORMATION
  Report Type: Spontaneous
  Country: US (occurrence: None)
  Receive Date: 20120709
  Receipt Date: 20130724
  Transmission Date: 20141002
  Serious: Yes (Other)
  Sender: FDA-Public Use
  Company Number: PHHY2010US18642

PATIENT
  Age: 54 Year
  Sex: Male

DRUGS (10)
  1. GLEEVEC (IMATINIB) UNKNOWN [Suspect]
     Indication: CHRONIC MYELOID LEUKAEMIA
     Route: 048
     Dates: start: 20090130
  2. IRON SUPPLEMENTS (NO INGREDIENTS/SUBSTANCES) [Concomitant]
  3. ZYRTEC (CETIRIZINE HYDROCHLORIDE) [Concomitant]
  4. MOBIC (MELOXICAM) [Concomitant]
  5. BENICAR (OLMESARTAN MEDOXOMIL) [Concomitant]
  6. KLOR-CON (POTASSIUM CHLORIDE) [Concomitant]
  7. MAG-OX (MAGNESIUM OXIDE) [Concomitant]
  8. SLOW-FE (FERROUS SULFATE EXSICCATED) [Concomitant]
  9. VITAMIN B12 (CYANOCOBALAMIN) [Concomitant]
  10. PREVACID (LANSOPRAZOLE) [Concomitant]

REACTIONS (2)
  - Papilloedema [None]
  - Muscle spasms [None]
